FAERS Safety Report 13102417 (Version 1)
Quarter: 2017Q1

REPORT INFORMATION
  Report Type: Spontaneous
  Country: US (occurrence: US)
  Receive Date: 20170110
  Receipt Date: 20170110
  Transmission Date: 20170428
  Serious: No
  Sender: FDA-Public Use
  Company Number: US-ALLERGAN-1664066US

PATIENT
  Sex: Female

DRUGS (1)
  1. PRED FORTE [Suspect]
     Active Substance: PREDNISOLONE ACETATE
     Indication: INFLAMMATION
     Dosage: UNK, TID
     Route: 047
     Dates: start: 20160626, end: 20160629

REACTIONS (4)
  - Ocular hyperaemia [Recovered/Resolved]
  - Eye irritation [Unknown]
  - Skin discolouration [Unknown]
  - Condition aggravated [Recovering/Resolving]

NARRATIVE: CASE EVENT DATE: 20160626
